FAERS Safety Report 9036889 (Version 2)
Quarter: 2013Q1

REPORT INFORMATION
  Report Type: Spontaneous
  Country: CA (occurrence: None)
  Receive Date: 20121207
  Receipt Date: 20121226
  Transmission Date: 20140127
  Serious: Yes (Other)
  Sender: FDA-Public Use
  Company Number: 2012034157

PATIENT
  Age: 47 Year
  Sex: Female

DRUGS (1)
  1. HIZENTRA (IMMUNOGLOBULIN HUMAN NORMAL) [Suspect]

REACTIONS (6)
  - Coeliac disease [None]
  - Condition aggravated [None]
  - Fatigue [None]
  - Asthenia [None]
  - Gastrooesophageal reflux disease [None]
  - Asthenia [None]
